FAERS Safety Report 15825264 (Version 2)
Quarter: 2019Q1

REPORT INFORMATION
  Report Type: Report from Study
  Country: HU (occurrence: FR)
  Receive Date: 20190115
  Receipt Date: 20190309
  Transmission Date: 20190417
  Serious: Yes (Hospitalization)
  Sender: FDA-Public Use
  Company Number: FR-TAKEDA-2019TUS001194

PATIENT
  Age: 46 Year
  Sex: Female
  Weight: 62 kg

DRUGS (3)
  1. VEDOLIZUMAB [Suspect]
     Active Substance: VEDOLIZUMAB
     Indication: COLITIS ULCERATIVE
     Dosage: 300 MILLIGRAM
     Route: 042
     Dates: start: 20160819, end: 20170710
  2. CORTIMENT                          /00028601/ [Concomitant]
     Active Substance: HYDROCORTISONE
     Indication: COLITIS ULCERATIVE
     Dosage: 10 MG, QD
     Route: 048
     Dates: start: 20170418, end: 20170710
  3. MEDROL [Concomitant]
     Active Substance: METHYLPREDNISOLONE
     Indication: COLITIS ULCERATIVE
     Dosage: 5 MILLIGRAM, QD
     Route: 048
     Dates: start: 20160630, end: 20161114

REACTIONS (1)
  - Colitis ulcerative [Recovered/Resolved]

NARRATIVE: CASE EVENT DATE: 20170424
